FAERS Safety Report 14379403 (Version 1)
Quarter: 2018Q1

REPORT INFORMATION
  Report Type: Spontaneous
  Country: US (occurrence: US)
  Receive Date: 20180112
  Receipt Date: 20180112
  Transmission Date: 20180509
  Serious: Yes (Other)
  Sender: FDA-Public Use
  Company Number: US-TEVA-2018-US-843360

PATIENT
  Sex: Female

DRUGS (1)
  1. COPAXONE [Suspect]
     Active Substance: GLATIRAMER ACETATE
     Dosage: FORM STRENGTH:UNKNOWN
     Route: 065

REACTIONS (5)
  - Dyspnoea [Unknown]
  - Drug ineffective [Unknown]
  - Local reaction [Unknown]
  - Hepatic enzyme increased [Unknown]
  - Anaphylactic reaction [Unknown]
